FAERS Safety Report 14723822 (Version 2)
Quarter: 2019Q3

REPORT INFORMATION
  Report Type: Report from Study
  Country: US (occurrence: US)
  Receive Date: 20180405
  Receipt Date: 20190712
  Transmission Date: 20191004
  Serious: Yes (Hospitalization, Other)
  Sender: FDA-Public Use
  Company Number: US-TAKEDA-2018TUS008576

PATIENT
  Age: 45 Year
  Sex: Male
  Weight: 83.9 kg

DRUGS (1)
  1. VEDOLIZUMAB [Suspect]
     Active Substance: VEDOLIZUMAB
     Indication: CROHN^S DISEASE
     Dosage: 300 MILLIGRAM
     Route: 042
     Dates: start: 20170925

REACTIONS (5)
  - Appendicectomy [Recovering/Resolving]
  - Incisional hernia [Unknown]
  - Alopecia [Unknown]
  - Colectomy [Recovering/Resolving]
  - Intestinal mass [Unknown]

NARRATIVE: CASE EVENT DATE: 2018
